FAERS Safety Report 4881909-1 (Version None)
Quarter: 2005Q4

REPORT INFORMATION
  Report Type: 
  Country: None (occurrence: None)
  Receive Date: 20051227
  Receipt Date: 20051208
  Transmission Date: 20060501
  Serious: Yes (Hospitalization)
  Sender: FDA-Public Use
  Company Number: US162010

PATIENT
  Age: 67 Year
  Sex: Female

DRUGS (3)
  1. ENBREL [Suspect]
     Indication: ERYTHRODERMIC PSORIASIS
  2. INFLIXIMAB [Suspect]
     Indication: ERYTHRODERMIC PSORIASIS
     Dosage: 5 MG/KG, 1 IN 1 WEEKS, SC
     Route: 058
  3. METHOTREXATE [Suspect]

REACTIONS (8)
  - ACRODERMATITIS [None]
  - ANTINUCLEAR ANTIBODY POSITIVE [None]
  - ANTIPHOSPHOLIPID SYNDROME [None]
  - ARTERIAL THROMBOSIS [None]
  - BLOOD IMMUNOGLOBULIN M INCREASED [None]
  - CONDITION AGGRAVATED [None]
  - DNA ANTIBODY POSITIVE [None]
  - PERIPHERAL ISCHAEMIA [None]
